FAERS Safety Report 8083135-4 (Version None)
Quarter: 2012Q1

REPORT INFORMATION
  Report Type: 
  Country: None (occurrence: None)
  Receive Date: 20120130
  Receipt Date: 20120123
  Transmission Date: 20120608
  Serious: Yes (Hospitalization)
  Sender: FDA-Public Use
  Company Number: PHHY2011ES108158

PATIENT
  Sex: Female
  Weight: 68 kg

DRUGS (3)
  1. ALPRAZOLAM [Concomitant]
     Indication: ANXIETY
     Dosage: UNK UKN, UNK
  2. OXAZEPAM [Concomitant]
     Indication: DEPRESSION
     Dosage: UNK UKN, UNK
  3. AMOXICILLIN [Suspect]
     Indication: INFECTION
     Dosage: 750 MG, EACH 8 HOURS
     Route: 048
     Dates: start: 20111210, end: 20111210

REACTIONS (12)
  - VOMITING [None]
  - RASH ERYTHEMATOUS [None]
  - CONJUNCTIVAL HYPERAEMIA [None]
  - DYSPNOEA [None]
  - GENERALISED OEDEMA [None]
  - PRURITUS [None]
  - INFLAMMATION [None]
  - ABDOMINAL PAIN UPPER [None]
  - ENANTHEMA [None]
  - NAUSEA [None]
  - GENERALISED ERYTHEMA [None]
  - DISCOMFORT [None]
